FAERS Safety Report 7071456-3 (Version None)
Quarter: 2010Q4

REPORT INFORMATION
  Report Type: 
  Country: None (occurrence: None)
  Receive Date: 20101029
  Receipt Date: 20090914
  Transmission Date: 20110411
  Serious: No
  Sender: FDA-Public Use
  Company Number: A0806000A

PATIENT
  Age: 69 Year
  Sex: Female

DRUGS (6)
  1. ADVAIR DISKUS 100/50 [Suspect]
     Indication: CHRONIC OBSTRUCTIVE PULMONARY DISEASE
     Dosage: 1PUFF PER DAY
     Route: 055
     Dates: start: 20090603, end: 20090901
  2. CRESTOR [Concomitant]
  3. SPIRONOLACTONE/HYDROCHLOROTHIAZIDE [Concomitant]
  4. PAXIL [Concomitant]
  5. PRILOSEC [Concomitant]
  6. ENALAPRIL MALEATE [Concomitant]

REACTIONS (3)
  - ACCOMMODATION DISORDER [None]
  - DRUG INEFFECTIVE [None]
  - VISUAL IMPAIRMENT [None]
